FAERS Safety Report 16058705 (Version 1)
Quarter: 2019Q1

REPORT INFORMATION
  Report Type: Report from Study
  Country: CA (occurrence: CA)
  Receive Date: 20190311
  Receipt Date: 20190311
  Transmission Date: 20190418
  Serious: Yes (Other)
  Sender: FDA-Public Use
  Company Number: CA-JNJFOC-20180929637

PATIENT
  Age: 36 Year
  Sex: Male
  Weight: 69 kg

DRUGS (2)
  1. REMICADE [Suspect]
     Active Substance: INFLIXIMAB
     Indication: CROHN^S DISEASE
     Route: 042
     Dates: start: 20100914
  2. REMICADE [Suspect]
     Active Substance: INFLIXIMAB
     Indication: CROHN^S DISEASE
     Route: 042
     Dates: start: 20181001

REACTIONS (6)
  - Nasopharyngitis [Unknown]
  - Crohn^s disease [Not Recovered/Not Resolved]
  - General physical health deterioration [Recovering/Resolving]
  - Inappropriate schedule of product administration [Unknown]
  - Lupus-like syndrome [Unknown]
  - Ear infection [Unknown]

NARRATIVE: CASE EVENT DATE: 20180924
